FAERS Safety Report 12285284 (Version 3)
Quarter: 2016Q3

REPORT INFORMATION
  Report Type: Report from Study
  Country: BR (occurrence: BR)
  Receive Date: 20160420
  Receipt Date: 20160714
  Transmission Date: 20161109
  Serious: No
  Sender: FDA-Public Use
  Company Number: PHHY2016BR052485

PATIENT
  Sex: Female
  Weight: 88 kg

DRUGS (1)
  1. SANDOSTATIN LAR DEPOT [Suspect]
     Active Substance: OCTREOTIDE ACETATE
     Indication: ACROMEGALY
     Dosage: 30 MG, QMO
     Route: 030
     Dates: start: 20160128, end: 201604

REACTIONS (3)
  - Dyspnoea [Unknown]
  - Hyperphagia [Unknown]
  - Overweight [Unknown]
